FAERS Safety Report 6442434-X (Version None)
Quarter: 2009Q4

REPORT INFORMATION
  Report Type: 
  Country: None (occurrence: None)
  Receive Date: 20091116
  Receipt Date: 20091110
  Transmission Date: 20100525
  Serious: No
  Sender: FDA-Public Use
  Company Number: US-B.I. PHARMACEUTICALS,INC./RIDGEFIELD-2009-BP-11220BP

PATIENT
  Age: 57 Year
  Sex: Female

DRUGS (10)
  1. SPIRIVA [Suspect]
     Indication: ASTHMA
     Dosage: 18 MCG
     Route: 055
     Dates: start: 20070101
  2. PREVACID [Concomitant]
  3. BENTYL [Concomitant]
  4. XOPENEX [Concomitant]
  5. DESYREL [Concomitant]
  6. FLEXERIL [Concomitant]
  7. PRO-AIR [Concomitant]
  8. ULTRAM [Concomitant]
  9. IBUPROFEN [Concomitant]
  10. FLONASE [Concomitant]

REACTIONS (3)
  - CHEST PAIN [None]
  - COUGH [None]
  - FOREIGN BODY ASPIRATION [None]
